FAERS Safety Report 19901855 (Version 1)
Quarter: 2021Q3

REPORT INFORMATION
  Report Type: Report from Study
  Country: IN (occurrence: IN)
  Receive Date: 20210930
  Receipt Date: 20210930
  Transmission Date: 20211014
  Serious: Yes (Death, Other)
  Sender: FDA-Public Use
  Company Number: IN-BRISTOL-MYERS SQUIBB COMPANY-BMS-2021-098937

PATIENT
  Age: 60 Year
  Sex: Female
  Weight: 42.5 kg

DRUGS (1)
  1. NIVOLUMAB [Suspect]
     Active Substance: NIVOLUMAB
     Indication: SQUAMOUS CELL CARCINOMA OF HEAD AND NECK
     Dosage: 128 MILLIGRAM, Q2WK
     Route: 042
     Dates: start: 20210222

REACTIONS (2)
  - Death [Fatal]
  - Prescribed overdose [Unknown]
